FAERS Safety Report 6407455-1 (Version None)
Quarter: 2009Q4

REPORT INFORMATION
  Report Type: 
  Country: None (occurrence: None)
  Receive Date: 20091020
  Receipt Date: 20091013
  Transmission Date: 20100525
  Serious: Yes (Other)
  Sender: FDA-Public Use
  Company Number: DE-BRISTOL-MYERS SQUIBB COMPANY-14814735

PATIENT
  Age: 52 Year
  Sex: Female

DRUGS (2)
  1. CISPLATIN [Suspect]
     Dosage: (20 MG/M2, DAY 1-3) , EVERY 28 DAYS.
  2. IFOSFAMIDE [Suspect]
     Dosage: (1000 MG/M2, DAY 1) , EVERY 28 DAYS.

REACTIONS (4)
  - ENCEPHALOPATHY [None]
  - HEARING IMPAIRED [None]
  - PANCYTOPENIA [None]
  - RENAL IMPAIRMENT [None]
